FAERS Safety Report 8506478-6 (Version None)
Quarter: 2012Q3

REPORT INFORMATION
  Report Type: 
  Country: None (occurrence: None)
  Receive Date: 20120712
  Receipt Date: 20120703
  Transmission Date: 20120928
  Serious: Yes (Other)
  Sender: FDA-Public Use
  Company Number: CA-JNJFOC-20120701792

PATIENT
  Sex: Male
  Weight: 108.86 kg

DRUGS (7)
  1. CALCIUM [Concomitant]
     Route: 065
  2. QUININE SULFATE [Concomitant]
     Route: 065
  3. OLMESARTAN MEDOXOMIL [Concomitant]
     Route: 065
  4. REMICADE [Suspect]
     Indication: COLITIS ULCERATIVE
     Route: 042
     Dates: start: 20110621
  5. VITAMIN D [Concomitant]
     Route: 065
  6. IMURAN [Concomitant]
     Route: 065
  7. AVODART [Concomitant]
     Route: 065

REACTIONS (1)
  - PNEUMONIA [None]
